FAERS Safety Report 17026086 (Version 4)
Quarter: 2020Q2

REPORT INFORMATION
  Report Type: Spontaneous
  Country: US (occurrence: US)
  Receive Date: 20191113
  Receipt Date: 20200511
  Transmission Date: 20200713
  Serious: Yes (Other)
  Sender: FDA-Public Use
  Company Number: US-BAYER-2019-204643

PATIENT
  Age: 24 Year
  Sex: Female
  Weight: 62.59 kg

DRUGS (1)
  1. KYLEENA [Suspect]
     Active Substance: LEVONORGESTREL
     Indication: CONTRACEPTION
     Dosage: 17.5 MCG/24HR, CONT
     Route: 015
     Dates: start: 20190313, end: 20191113

REACTIONS (7)
  - Ovarian cyst [None]
  - Endometriosis [None]
  - Menorrhagia [None]
  - Device dislocation [Recovered/Resolved]
  - Medical device pain [None]
  - Uterine inflammation [None]
  - Ovarian cyst ruptured [None]

NARRATIVE: CASE EVENT DATE: 20191107
